FAERS Safety Report 12042772 (Version 1)
Quarter: 2016Q1

REPORT INFORMATION
  Report Type: Spontaneous
  Country: DE (occurrence: DE)
  Receive Date: 20160208
  Receipt Date: 20160208
  Transmission Date: 20160526
  Serious: Yes (Other)
  Sender: FDA-Public Use
  Company Number: DE-BIOGEN-2015BI022593

PATIENT
  Sex: Female
  Weight: 53 kg

DRUGS (2)
  1. PLEGRIDY [Suspect]
     Active Substance: PEGINTERFERON BETA-1A
     Route: 058
     Dates: start: 20141117, end: 20150213
  2. PLEGRIDY [Suspect]
     Active Substance: PEGINTERFERON BETA-1A
     Indication: MULTIPLE SCLEROSIS
     Route: 058
     Dates: start: 20141103

REACTIONS (5)
  - Aggression [Recovered/Resolved]
  - Injection site swelling [Recovered/Resolved]
  - Mental disorder [Recovered/Resolved]
  - Lymphadenopathy [Recovered/Resolved]
  - Peripheral venous disease [Recovered/Resolved]
